FAERS Safety Report 10511786 (Version 1)
Quarter: 2014Q4

REPORT INFORMATION
  Report Type: Spontaneous
  Country: JP (occurrence: JP)
  Receive Date: 20141010
  Receipt Date: 20141010
  Transmission Date: 20150528
  Serious: Yes (Hospitalization, Other)
  Sender: FDA-Public Use
  Company Number: JP-BAYER-2014-147132

PATIENT
  Age: 86 Year
  Sex: Female

DRUGS (1)
  1. ACETYLSALICYLIC ACID({=100 MG) [Suspect]
     Active Substance: ASPIRIN
     Dosage: UNK
     Route: 048
     Dates: start: 2003

REACTIONS (3)
  - Anaemia [Recovering/Resolving]
  - Pyogenic granuloma [None]
  - Small intestinal haemorrhage [None]

NARRATIVE: CASE EVENT DATE: 2011
